FAERS Safety Report 5402026-8 (Version None)
Quarter: 2007Q3

REPORT INFORMATION
  Report Type: 
  Country: None (occurrence: None)
  Receive Date: 20070726
  Receipt Date: 20070710
  Transmission Date: 20080115
  Serious: Yes (Other)
  Sender: FDA-Public Use
  Company Number: DSA_30110_2007

PATIENT
  Age: 42 Year
  Sex: Male

DRUGS (4)
  1. LORAZEPAM [Suspect]
     Indication: ANXIETY
     Dosage: (0.25 MG QD ORAL), (0.5 MG QD ORAL)
     Route: 048
     Dates: start: 20060901
  2. LORAZEPAM [Suspect]
     Indication: ANXIETY
     Dosage: (0.25 MG QD ORAL), (0.5 MG QD ORAL)
     Route: 048
     Dates: start: 20070508
  3. FLUSPIRILENE [Concomitant]
  4. VALERIAN EXTRACT [Concomitant]

REACTIONS (5)
  - ACCOMMODATION DISORDER [None]
  - DISTURBANCE IN ATTENTION [None]
  - DRUG DEPENDENCE [None]
  - FATIGUE [None]
  - MOTOR DYSFUNCTION [None]
